FAERS Safety Report 20356179 (Version 5)
Quarter: 2022Q2

REPORT INFORMATION
  Report Type: Report from Study
  Country: CO (occurrence: CO)
  Receive Date: 20220120
  Receipt Date: 20220625
  Transmission Date: 20220720
  Serious: Yes (Other)
  Sender: FDA-Public Use
  Company Number: CO-ABBVIE-22K-036-4240933-00

PATIENT
  Sex: Female
  Weight: 65 kg

DRUGS (2)
  1. HUMIRA [Suspect]
     Active Substance: ADALIMUMAB
     Indication: Rheumatoid arthritis
     Route: 058
     Dates: end: 20210616
  2. HUMIRA [Suspect]
     Active Substance: ADALIMUMAB
     Indication: Rheumatoid arthritis
     Route: 058
     Dates: start: 20081112

REACTIONS (16)
  - Joint dislocation [Recovered/Resolved]
  - Pelvic deformity [Not Recovered/Not Resolved]
  - Joint dislocation [Recovering/Resolving]
  - Hand deformity [Not Recovered/Not Resolved]
  - Knee arthroplasty [Recovered/Resolved]
  - Haemoglobin decreased [Not Recovered/Not Resolved]
  - Somnolence [Recovered/Resolved]
  - Illness [Not Recovered/Not Resolved]
  - Somnolence [Not Recovered/Not Resolved]
  - Weight decreased [Not Recovered/Not Resolved]
  - Fatigue [Not Recovered/Not Resolved]
  - Mobility decreased [Not Recovered/Not Resolved]
  - Ligament sprain [Not Recovered/Not Resolved]
  - Finger deformity [Not Recovered/Not Resolved]
  - Hypoaesthesia [Unknown]
  - Arthralgia [Recovering/Resolving]

NARRATIVE: CASE EVENT DATE: 20180101
